FAERS Safety Report 5657493-1 (Version None)
Quarter: 2008Q1

REPORT INFORMATION
  Report Type: 
  Country: None (occurrence: None)
  Receive Date: 20080310
  Receipt Date: 20080227
  Transmission Date: 20080703
  Serious: Yes (Other)
  Sender: FDA-Public Use
  Company Number: JP-PFIZER INC-2008018776

PATIENT
  Age: 19 Year
  Sex: Female

DRUGS (1)
  1. ZITHROMAX [Suspect]
     Indication: SEXUALLY TRANSMITTED DISEASE
     Route: 048
     Dates: start: 20080205, end: 20080205

REACTIONS (1)
  - LOSS OF CONSCIOUSNESS [None]
